FAERS Safety Report 7470791-4 (Version None)
Quarter: 2011Q2

REPORT INFORMATION
  Report Type: 
  Country: None (occurrence: None)
  Receive Date: 20110506
  Receipt Date: 20110506
  Transmission Date: 20111010
  Serious: Yes (Death)
  Sender: FDA-Public Use
  Company Number: None

PATIENT
  Age: 51 Year
  Sex: Male
  Weight: 158.759 kg

DRUGS (1)
  1. SERTRALINE HYDROCHLORIDE [Suspect]
     Indication: DEPRESSION
     Dosage: 200 MG 1 X PER DAY PO
     Route: 048
     Dates: start: 20100824, end: 20110216

REACTIONS (3)
  - CONVULSION [None]
  - ACCIDENTAL OVERDOSE [None]
  - ACCIDENTAL DEATH [None]
